FAERS Safety Report 7812243-5 (Version None)
Quarter: 2011Q4

REPORT INFORMATION
  Report Type: 
  Country: None (occurrence: None)
  Receive Date: 20111013
  Receipt Date: 20110920
  Transmission Date: 20120403
  Serious: Yes (Hospitalization)
  Sender: FDA-Public Use
  Company Number: US-BAYER-201042139NA

PATIENT
  Sex: Female
  Weight: 98 kg

DRUGS (9)
  1. PROVENTIL [Concomitant]
  2. YASMIN [Suspect]
     Indication: MENSTRUAL CYCLE MANAGEMENT
     Dosage: UNK UNK, UNK
     Route: 048
     Dates: start: 20060901, end: 20071101
  3. DETROL LA [Concomitant]
     Dosage: 4 MG, UNK
     Dates: start: 20071022
  4. MACROBID [Concomitant]
     Dosage: 100 MG, UNK
     Dates: start: 20071022
  5. ACETAMINOPHEN [Concomitant]
     Dosage: UNK
     Dates: start: 20080101
  6. COMBIVENT [Concomitant]
     Dosage: 2 PUFF(S), UNK
  7. ZEGERID [Concomitant]
     Dosage: UNK
     Dates: start: 20050101
  8. YASMIN [Suspect]
     Indication: CONTRACEPTION
  9. HYOSCYAMINE [Concomitant]
     Dosage: 0.125 MG, UNK
     Dates: start: 20071022

REACTIONS (5)
  - PULMONARY EMBOLISM [None]
  - CHOLELITHIASIS [None]
  - GALLBLADDER DISORDER [None]
  - CHOLECYSTITIS CHRONIC [None]
  - GALLBLADDER CHOLESTEROLOSIS [None]
